FAERS Safety Report 8491159-8 (Version None)
Quarter: 2012Q2

REPORT INFORMATION
  Report Type: 
  Country: None (occurrence: None)
  Receive Date: 20120402
  Receipt Date: 20120116
  Transmission Date: 20120825
  Serious: Yes (Other)
  Sender: FDA-Public Use
  Company Number: 311042USA

PATIENT
  Age: 15 Year
  Sex: Female

DRUGS (1)
  1. TOPIRAMATE [Suspect]
     Indication: MIGRAINE
     Dosage: 1/DAY FOR 7 DAYS, 2/DAY THEREAFTER (25 MG)
     Dates: start: 20111107, end: 20111117

REACTIONS (4)
  - INTRAOCULAR PRESSURE INCREASED [None]
  - NARROW ANTERIOR CHAMBER ANGLE [None]
  - MYOPIA [None]
  - CONJUNCTIVITIS [None]
